FAERS Safety Report 9569039 (Version 1)
Quarter: 2013Q3

REPORT INFORMATION
  Report Type: Spontaneous
  Country: US (occurrence: US)
  Receive Date: 20130930
  Receipt Date: 20130930
  Transmission Date: 20140515
  Serious: Yes (Other)
  Sender: FDA-Public Use
  Company Number: US-AMGEN-USASP2013058896

PATIENT
  Age: 61 Year
  Sex: Female
  Weight: 99.32 kg

DRUGS (11)
  1. ENBREL [Suspect]
     Indication: RHEUMATOID ARTHRITIS
     Dosage: 50 MG, QWK
     Route: 058
  2. ONGLYZA [Concomitant]
     Dosage: 2.5 MG, UNK
     Route: 048
  3. FLEXERIL                           /00428402/ [Concomitant]
     Dosage: 10 MG, UNK
     Route: 048
  4. SERTRALINE [Concomitant]
     Dosage: 25 MG, UNK
     Route: 048
  5. METHOTREXATE [Concomitant]
     Dosage: 2.5 MG, UNK
     Route: 048
  6. SYNTHROID [Concomitant]
     Dosage: 100 MUG, UNK
     Route: 048
  7. TRAMADOL HCL [Concomitant]
     Dosage: 50 MG, UNK
     Route: 048
  8. SIMVASTATIN [Concomitant]
     Dosage: 10 MG, UNK
     Route: 048
  9. GLYBURIDE [Concomitant]
     Dosage: 5 MG, UNK
     Route: 048
  10. LOSARTAN POTASSIUM [Concomitant]
     Dosage: 50 MG, UNK
     Route: 048
  11. FOLIC ACID [Concomitant]
     Dosage: UNK
     Route: 048

REACTIONS (3)
  - Mastitis [Recovered/Resolved]
  - Urinary tract infection [Recovered/Resolved]
  - Abdominal infection [Recovered/Resolved]
